FAERS Safety Report 5563443-9 (Version None)
Quarter: 2007Q4

REPORT INFORMATION
  Report Type: 
  Country: None (occurrence: None)
  Receive Date: 20071217
  Receipt Date: 20070524
  Transmission Date: 20080405
  Serious: No
  Sender: FDA-Public Use
  Company Number: US-ASTRAZENECA-2007UW12907

PATIENT
  Age: 78 Year
  Sex: Female
  Weight: 63.5 kg

DRUGS (2)
  1. CRESTOR [Suspect]
     Indication: BLOOD CHOLESTEROL INCREASED
     Route: 048
     Dates: start: 20061101
  2. CRESTOR [Suspect]
     Route: 048
     Dates: start: 20061101

REACTIONS (4)
  - DRY MOUTH [None]
  - HIGH DENSITY LIPOPROTEIN [None]
  - INSOMNIA [None]
  - RASH [None]
